FAERS Safety Report 5918937-0 (Version None)
Quarter: 2008Q4

REPORT INFORMATION
  Report Type: 
  Country: None (occurrence: None)
  Receive Date: 20081010
  Receipt Date: 20081003
  Transmission Date: 20090506
  Serious: Yes (Death)
  Sender: FDA-Public Use
  Company Number: 20332

PATIENT
  Age: 62 Year
  Sex: Male

DRUGS (4)
  1. FLUDARABINE PHOSPHATE [Suspect]
     Indication: MYELODYSPLASTIC SYNDROME
  2. MELPHALAN [Suspect]
     Indication: MYELODYSPLASTIC SYNDROME
  3. CAMPATH [Suspect]
     Indication: MYELODYSPLASTIC SYNDROME
     Dosage: 10 MG
  4. CYCLOSPORINE [Suspect]
     Indication: PROPHYLAXIS AGAINST GRAFT VERSUS HOST DISEASE

REACTIONS (3)
  - EPSTEIN-BARR VIRUS ASSOCIATED LYMPHOPROLIFERATIVE DISORDER [None]
  - EPSTEIN-BARR VIRUS INFECTION [None]
  - OBSTRUCTIVE AIRWAYS DISORDER [None]
